FAERS Safety Report 10736292 (Version 3)
Quarter: 2015Q2

REPORT INFORMATION
  Report Type: Spontaneous
  Country: MX (occurrence: None)
  Receive Date: 20150122
  Receipt Date: 20150514
  Transmission Date: 20150821
  Serious: Yes (Death)
  Sender: FDA-Public Use
  Company Number: 2015ILOMX000390

PATIENT
  Age: 30 Year
  Sex: Male
  Weight: 146 kg

DRUGS (4)
  1. CLONAZEPAM. [Concomitant]
     Active Substance: CLONAZEPAM
  2. FANAPT [Suspect]
     Active Substance: ILOPERIDONE
     Indication: SCHIZOPHRENIA
     Dates: start: 20141210, end: 201412
  3. PRAVASTATINE (PRAVASTATIN SODIUM) [Concomitant]
  4. METFORMINE (METFORMIN HYDROCHLORIDE) [Concomitant]

REACTIONS (2)
  - Acute myocardial infarction [None]
  - Death [None]

NARRATIVE: CASE EVENT DATE: 20141218
